FAERS Safety Report 5263839-9 (Version None)
Quarter: 2007Q1

REPORT INFORMATION
  Report Type: 
  Country: None (occurrence: None)
  Receive Date: 20070313
  Receipt Date: 20070302
  Transmission Date: 20070707
  Serious: Yes (Hospitalization)
  Sender: FDA-Public Use
  Company Number: FRPFM-E-20070029

PATIENT
  Age: 15 Month
  Sex: Male
  Weight: 9.8 kg

DRUGS (2)
  1. CIBLOR [Suspect]
     Indication: TONSILLITIS
     Route: 048
     Dates: start: 20070115, end: 20070121
  2. CELESTENE [Suspect]
     Indication: TONSILLITIS
     Dosage: 1.25MGD PER DAY
     Route: 048
     Dates: start: 20070115, end: 20070121

REACTIONS (6)
  - APHTHOUS STOMATITIS [None]
  - DUODENAL ULCER [None]
  - FAECES DISCOLOURED [None]
  - HAEMATEMESIS [None]
  - PYREXIA [None]
  - RASH ERYTHEMATOUS [None]
